FAERS Safety Report 19960697 (Version 2)
Quarter: 2021Q4

REPORT INFORMATION
  Report Type: Spontaneous
  Country: FR (occurrence: FR)
  Receive Date: 20211016
  Receipt Date: 20211102
  Transmission Date: 20220303
  Serious: Yes (Hospitalization, Other)
  Sender: FDA-Public Use
  Company Number: FR-STADA-233806

PATIENT
  Age: 42 Year
  Sex: Male

DRUGS (15)
  1. DIAZEPAM [Suspect]
     Active Substance: DIAZEPAM
     Indication: Agitation
     Dosage: 40 MILLIGRAM, DAILY
     Route: 065
     Dates: start: 2019
  2. DIAZEPAM [Suspect]
     Active Substance: DIAZEPAM
     Indication: Psychotic symptom
  3. OLANZAPINE [Suspect]
     Active Substance: OLANZAPINE
     Indication: Agitation
     Dosage: 10 MILLIGRAM, DAILY
     Route: 065
     Dates: start: 2019, end: 2019
  4. OLANZAPINE [Suspect]
     Active Substance: OLANZAPINE
     Indication: Psychotic symptom
     Dosage: 20 MILLIGRAM, DAILY
     Route: 065
     Dates: start: 2019, end: 2019
  5. HALOPERIDOL [Suspect]
     Active Substance: HALOPERIDOL
     Indication: Agitation
     Dosage: 5 MILLIGRAM(FOUR DOSES )/ON HOSPITAL DAY 10 AT 7:00 PM/ON THE FIRST NIGHT OF HIS ADMISSION/ON HOSPIT
     Route: 030
     Dates: start: 2019
  6. HALOPERIDOL [Suspect]
     Active Substance: HALOPERIDOL
     Indication: Psychotic symptom
     Dosage: UNK
     Route: 030
     Dates: start: 2019
  7. PROMETHAZINE [Suspect]
     Active Substance: PROMETHAZINE HYDROCHLORIDE
     Indication: Agitation
     Dosage: 50 MILLIGRAM(THREE DOSES )
     Route: 030
     Dates: start: 2019
  8. PROMETHAZINE [Suspect]
     Active Substance: PROMETHAZINE HYDROCHLORIDE
     Indication: Psychotic symptom
     Dosage: 100 MILLIGRAM
     Route: 030
     Dates: start: 2019
  9. PROMETHAZINE [Suspect]
     Active Substance: PROMETHAZINE HYDROCHLORIDE
     Dosage: SECOND DAY OF HIS ADMISSION/ON HOSPITAL DAY 10 AT 4:30 AM
     Route: 030
     Dates: start: 2019
  10. CHLORPROMAZINE [Suspect]
     Active Substance: CHLORPROMAZINE
     Indication: Agitation
     Dosage: 25 MILLIGRAM(THREE DOSES )
     Route: 030
     Dates: start: 2019
  11. CHLORPROMAZINE [Suspect]
     Active Substance: CHLORPROMAZINE
     Indication: Psychotic symptom
     Dosage: 100 MILLIGRAM
     Route: 048
     Dates: start: 2019
  12. CHLORPROMAZINE [Suspect]
     Active Substance: CHLORPROMAZINE
     Dosage: 12.5 MILLIGRAM
     Route: 030
     Dates: start: 2019
  13. CHLORPROMAZINE [Suspect]
     Active Substance: CHLORPROMAZINE
     Dosage: ON HOSPITAL DAY 10 AT 4:30 AM/SECOND DAY OF HIS ADMISSION
     Route: 030
     Dates: start: 2019
  14. BISOPROLOL [Concomitant]
     Active Substance: BISOPROLOL
     Indication: Sinus tachycardia
     Dosage: 5 MILLIGRAM, DAILY
     Route: 065
     Dates: start: 2019
  15. MEROPENEM [Concomitant]
     Active Substance: MEROPENEM
     Indication: Product used for unknown indication
     Dosage: 1 GRAM, 3 TIMES A DAY

REACTIONS (2)
  - Neuroleptic malignant syndrome [Recovering/Resolving]
  - Haemodynamic instability [Recovering/Resolving]

NARRATIVE: CASE EVENT DATE: 20190101
